FAERS Safety Report 20229127 (Version 2)
Quarter: 2024Q4

REPORT INFORMATION
  Report Type: Spontaneous
  Country: DE (occurrence: DE)
  Receive Date: 20211225
  Receipt Date: 20241226
  Transmission Date: 20250114
  Serious: No
  Sender: ALKEM
  Company Number: DE-ALKEM LABORATORIES LIMITED-DE-ALKEM-2020-08499

PATIENT
  Age: 50 Year
  Sex: Female

DRUGS (3)
  1. MYCOPHENOLATE MOFETIL [Suspect]
     Active Substance: MYCOPHENOLATE MOFETIL
     Indication: Lupus nephritis
     Dosage: UNK
     Route: 065
  2. BORTEZOMIB [Suspect]
     Active Substance: BORTEZOMIB
     Indication: Lupus nephritis
     Dosage: UNK (POWDER FOR SOLUTION FOR INJECTION)
     Route: 065
  3. CYCLOPHOSPHAMIDE [Suspect]
     Active Substance: CYCLOPHOSPHAMIDE
     Indication: Lupus nephritis
     Dosage: UNK (POWDER FOR SOLUTION FOR INJECTION)
     Route: 065

REACTIONS (1)
  - Treatment failure [Unknown]
